FAERS Safety Report 20845031 (Version 1)
Quarter: 2022Q2

REPORT INFORMATION
  Report Type: Spontaneous
  Country: TR (occurrence: TR)
  Receive Date: 20220518
  Receipt Date: 20220518
  Transmission Date: 20220721
  Serious: Yes (Other)
  Sender: FDA-Public Use
  Company Number: TR-Fresenius Kabi-FK202205564

PATIENT
  Age: 17 Year
  Sex: Male

DRUGS (5)
  1. CHORIONIC GONADOTROPIN [Suspect]
     Active Substance: CHORIOGONADOTROPIN ALFA
     Indication: Adverse drug reaction
     Route: 065
  2. OXYMETHOLONE [Suspect]
     Active Substance: OXYMETHOLONE
     Indication: Muscle building therapy
     Route: 065
  3. OXANDROLONE [Suspect]
     Active Substance: OXANDROLONE
     Indication: Muscle building therapy
     Route: 065
  4. MESTEROLONE [Suspect]
     Active Substance: MESTEROLONE
     Indication: Muscle building therapy
     Route: 065
  5. METHANDROSTENOLONE [Suspect]
     Active Substance: METHANDROSTENOLONE
     Indication: Muscle building therapy
     Route: 065

REACTIONS (1)
  - Psychotic disorder [Recovering/Resolving]
